FAERS Safety Report 12935441 (Version 3)
Quarter: 2018Q2

REPORT INFORMATION
  Report Type: Spontaneous
  Country: US (occurrence: US)
  Receive Date: 20161114
  Receipt Date: 20180620
  Transmission Date: 20180711
  Serious: No
  Sender: FDA-Public Use
  Company Number: US-JAZZ-2016-US-018360

PATIENT
  Sex: Female

DRUGS (36)
  1. XYREM [Suspect]
     Active Substance: SODIUM OXYBATE
     Indication: NARCOLEPSY
     Dosage: 2.25 G, BID
     Route: 048
     Dates: start: 201011, end: 201011
  2. XYREM [Suspect]
     Active Substance: SODIUM OXYBATE
     Indication: CATAPLEXY
     Dosage: 3 G, BID
     Route: 048
     Dates: start: 201011, end: 201101
  3. XYREM [Suspect]
     Active Substance: SODIUM OXYBATE
     Dosage: 3.75 G, BID
     Route: 048
     Dates: start: 201101, end: 2011
  4. DOXYCYCLINE HYCLATE. [Concomitant]
     Active Substance: DOXYCYCLINE HYCLATE
  5. NYSTATIN. [Concomitant]
     Active Substance: NYSTATIN
  6. XYREM [Suspect]
     Active Substance: SODIUM OXYBATE
     Dosage: DOSE ADJUSTMENTS
     Route: 048
     Dates: start: 201205, end: 201606
  7. XYREM [Suspect]
     Active Substance: SODIUM OXYBATE
     Dosage: 3.75 G, SECOND DOSE
     Route: 048
     Dates: start: 201606
  8. ADRENAL [Concomitant]
     Active Substance: EPINEPHRINE
  9. ALPRAZOLAM. [Concomitant]
     Active Substance: ALPRAZOLAM
  10. IBUPROFEN. [Concomitant]
     Active Substance: IBUPROFEN
  11. RIFAMPIN. [Concomitant]
     Active Substance: RIFAMPIN
  12. ZYRTEC [Concomitant]
     Active Substance: CETIRIZINE HYDROCHLORIDE
  13. MILK THISTLE EXTRACT [Concomitant]
     Active Substance: DIETARY SUPPLEMENT\HERBALS\MILK THISTLE
  14. ARMOUR THYROID [Concomitant]
     Active Substance: THYROID, PORCINE
  15. XYREM [Suspect]
     Active Substance: SODIUM OXYBATE
     Dosage: 4.5 G, FIRST DOSE
     Route: 048
     Dates: start: 201606
  16. VITAMIN D3 [Concomitant]
     Active Substance: CHOLECALCIFEROL
  17. ADDERALL [Concomitant]
     Active Substance: AMPHETAMINE ASPARTATE\AMPHETAMINE SULFATE\DEXTROAMPHETAMINE SACCHARATE\DEXTROAMPHETAMINE SULFATE
  18. BIFIDOBACTERIUM LACTIS [Concomitant]
     Active Substance: BIFIDOBACTERIUM ANIMALIS LACTIS
  19. GLUCOSAMINE [Concomitant]
     Active Substance: GLUCOSAMINE
  20. XYREM [Suspect]
     Active Substance: SODIUM OXYBATE
     Dosage: 2.75 G, BID
     Route: 048
     Dates: start: 201204, end: 201205
  21. SUMATRIPTAN. [Concomitant]
     Active Substance: SUMATRIPTAN
  22. FLORAJEN [Concomitant]
  23. METHYLPHENIDATE. [Concomitant]
     Active Substance: METHYLPHENIDATE
  24. PROGESTERONE. [Concomitant]
     Active Substance: PROGESTERONE
  25. AZITHROMYCIN ANHYDROUS. [Concomitant]
     Active Substance: AZITHROMYCIN ANHYDROUS
  26. METHYLPREDNISOLONE. [Concomitant]
     Active Substance: METHYLPREDNISOLONE
  27. GLUCOSAMINE HCL [Concomitant]
     Active Substance: GLUCOSAMINE
  28. KRILL OIL [Concomitant]
     Active Substance: DIETARY SUPPLEMENT
  29. CEFUROXIME AXETIL. [Concomitant]
     Active Substance: CEFUROXIME AXETIL
  30. TOCOPHEROL [Concomitant]
     Active Substance: TOCOPHEROL
  31. DIAZEPAM. [Concomitant]
     Active Substance: DIAZEPAM
  32. COD LIVER OIL [Concomitant]
     Active Substance: COD LIVER OIL
  33. LEVOTHYROXINE. [Concomitant]
     Active Substance: LEVOTHYROXINE
  34. SERTRALINE HCL [Concomitant]
     Active Substance: SERTRALINE HYDROCHLORIDE
  35. HYDROCORTISONE. [Concomitant]
     Active Substance: HYDROCORTISONE
  36. CLONAZEPAM. [Concomitant]
     Active Substance: CLONAZEPAM

REACTIONS (4)
  - Arthropod bite [Recovered/Resolved]
  - Weight decreased [Unknown]
  - Adrenal disorder [Recovered/Resolved]
  - Progesterone decreased [Not Recovered/Not Resolved]

NARRATIVE: CASE EVENT DATE: 2016
